FAERS Safety Report 8942685 (Version 2)
Quarter: 2014Q2

REPORT INFORMATION
  Report Type: Spontaneous
  Country: US (occurrence: US)
  Receive Date: 20121204
  Receipt Date: 20131018
  Transmission Date: 20141212
  Serious: Yes (Other)
  Sender: FDA-Public Use
  Company Number: US-PFIZER INC-2012299259

PATIENT
  Age: 65 Year
  Sex: Female
  Weight: 127 kg

DRUGS (6)
  1. PREMPHASE [Suspect]
     Indication: MENOPAUSAL SYMPTOMS
     Dosage: 0.625 MG, 1X/DAY
     Dates: start: 2000
  2. QUINAPRIL HCL [Suspect]
     Dosage: 20 MG, 2X/DAY
     Dates: start: 2000
  3. METFORMIN [Concomitant]
     Indication: DIABETES MELLITUS
     Dosage: 1000 MG IN MORNING AND 500 MG AT NIGHT DAILY
  4. GLIPIZIDE [Concomitant]
     Indication: DIABETES MELLITUS
     Dosage: 5 MG, 1X/DAY
  5. CENTRUM SILVER [Concomitant]
     Dosage: UNK,DAILY
  6. FISH OIL [Concomitant]
     Dosage: 1000 MG,DAILY

REACTIONS (3)
  - Weight increased [Unknown]
  - Blood pressure increased [Unknown]
  - Blood cholesterol increased [Unknown]
